FAERS Safety Report 5289186-7 (Version None)
Quarter: 2007Q1

REPORT INFORMATION
  Report Type: 
  Country: None (occurrence: None)
  Receive Date: 20070119
  Receipt Date: 20060315
  Transmission Date: 20070707
  Serious: Yes (Hospitalization)
  Sender: FDA-Public Use
  Company Number: BDI-008038

PATIENT
  Age: 39 Year
  Sex: Female

DRUGS (6)
  1. PROHANCE [Suspect]
     Indication: NUCLEAR MAGNETIC RESONANCE IMAGING
     Dosage: 20 ML ONCE IV
     Route: 042
     Dates: start: 20060313, end: 20060313
  2. PROHANCE [Suspect]
     Indication: PAIN IN EXTREMITY
     Dosage: 20 ML ONCE IV
     Route: 042
     Dates: start: 20060313, end: 20060313
  3. SYNTHROID [Concomitant]
  4. WELLBUTRIN [Concomitant]
  5. LITHIUM CARBONATE [Concomitant]
  6. PAIN MEDICATION [Concomitant]

REACTIONS (1)
  - ANAPHYLACTIC REACTION [None]
